FAERS Safety Report 7564458-1 (Version None)
Quarter: 2011Q2

REPORT INFORMATION
  Report Type: 
  Country: None (occurrence: None)
  Receive Date: 20110622
  Receipt Date: 20110615
  Transmission Date: 20111010
  Serious: Yes (Hospitalization)
  Sender: FDA-Public Use
  Company Number: PHHO2011FR10630

PATIENT
  Sex: Female
  Weight: 67 kg

DRUGS (3)
  1. CERTICAN [Suspect]
     Indication: RENAL TRANSPLANT
     Dosage: 2.25 MG, BID
     Route: 048
     Dates: start: 20110507
  2. PREDNISOLONE [Concomitant]
     Indication: RENAL TRANSPLANT
     Dosage: 5 MG, QD
     Route: 048
     Dates: start: 20110222
  3. MYFORTIC [Concomitant]
     Indication: RENAL TRANSPLANT
     Dosage: 180 MG, BID
     Route: 048
     Dates: start: 20110519

REACTIONS (3)
  - DRUG INEFFECTIVE [None]
  - RENAL FAILURE ACUTE [None]
  - INFECTION [None]
